FAERS Safety Report 14664294 (Version 1)
Quarter: 2018Q1

REPORT INFORMATION
  Report Type: Spontaneous
  Country: CA (occurrence: CA)
  Receive Date: 20180318
  Receipt Date: 20180318
  Transmission Date: 20180509
  Serious: No
  Sender: FDA-Public Use
  Company Number: None

PATIENT
  Age: 15 Year
  Sex: Female
  Weight: 47.25 kg

DRUGS (1)
  1. PROACTIV [Suspect]
     Active Substance: BENZOYL PEROXIDE
     Indication: SKIN DISORDER
     Dosage: ?          QUANTITY:2 CREAM;?
     Route: 061
     Dates: start: 20180316, end: 20180317

REACTIONS (4)
  - Application site pruritus [None]
  - Application site swelling [None]
  - Product label issue [None]
  - Eye swelling [None]

NARRATIVE: CASE EVENT DATE: 20180316
